FAERS Safety Report 16828937 (Version 1)
Quarter: 2019Q3

REPORT INFORMATION
  Report Type: Spontaneous
  Country: DE (occurrence: DE)
  Receive Date: 20190919
  Receipt Date: 20190919
  Transmission Date: 20191005
  Serious: Yes (Hospitalization, Other)
  Sender: FDA-Public Use
  Company Number: DE-MYLANLABS-2019M1087492

PATIENT
  Sex: Female

DRUGS (33)
  1. PREDNISOLONE. [Suspect]
     Active Substance: PREDNISOLONE
     Dosage: 100 MG,QCY
     Route: 048
     Dates: start: 20171111
  2. INSULIN GLARGINE [Concomitant]
     Active Substance: INSULIN GLARGINE
     Indication: DIABETES MELLITUS
     Dosage: 4 IU,QD
     Route: 058
     Dates: start: 20171225
  3. BISOPROLOL [Concomitant]
     Active Substance: BISOPROLOL
     Indication: HYPERTENSION
     Dosage: 5 MG,QD
     Route: 048
     Dates: start: 20170101
  4. ENOXAPARIN SODIUM. [Concomitant]
     Active Substance: ENOXAPARIN SODIUM
     Indication: PROPHYLAXIS
     Dosage: 2 ML,QD
     Route: 058
     Dates: start: 20171219, end: 20180116
  5. PREDNISOLONE. [Suspect]
     Active Substance: PREDNISOLONE
     Indication: B-CELL LYMPHOMA
     Dosage: 100 MG,QCY
     Route: 048
  6. LEVOTHYROXINE SODIUM. [Concomitant]
     Active Substance: LEVOTHYROXINE SODIUM
     Dosage: 150 UG,QD
     Route: 048
     Dates: start: 2017
  7. VINCRISTINE [Concomitant]
     Active Substance: VINCRISTINE
     Indication: B-CELL LYMPHOMA
     Dosage: 2 MG,QCY
     Route: 042
     Dates: start: 20171121
  8. CIPROFLOXACIN. [Concomitant]
     Active Substance: CIPROFLOXACIN
     Indication: PROPHYLAXIS
  9. TIMOLOL. [Concomitant]
     Active Substance: TIMOLOL
     Dosage: UNK
  10. SULFAMETHOXAZOL W/TRIMETOPRIM [Concomitant]
     Active Substance: SULFAMETHOXAZOLE\TRIMETHOPRIM
     Dosage: 960 MG,UNK
     Route: 048
     Dates: start: 20170101
  11. AMLODIPINE [Concomitant]
     Active Substance: AMLODIPINE BESYLATE
     Dosage: 5 MG,QD
     Route: 048
     Dates: start: 20170101
  12. RITUXIMAB. [Suspect]
     Active Substance: RITUXIMAB
     Dosage: 772 MG,QCY
     Route: 042
     Dates: start: 20171218
  13. CYCLOPHOSPHAMIDE. [Suspect]
     Active Substance: CYCLOPHOSPHAMIDE
     Indication: B-CELL LYMPHOMA
     Dosage: 1545 MG,QCY
     Route: 042
     Dates: start: 20171121
  14. VINCRISTINE SULFATE. [Suspect]
     Active Substance: VINCRISTINE SULFATE
     Indication: B-CELL LYMPHOMA
     Dosage: 2 MG,QCY
     Route: 042
     Dates: start: 20171121
  15. DIPYRONE [Concomitant]
     Active Substance: DIPYRONE
     Indication: PAIN
     Dosage: 30 DF,QID
     Route: 065
     Dates: start: 20170101
  16. AMLODIPINE [Concomitant]
     Active Substance: AMLODIPINE BESYLATE
     Indication: HYPERTENSION
     Dosage: 5 MG,QD
     Route: 048
     Dates: start: 2017
  17. PANTOPRAZOLE [Concomitant]
     Active Substance: PANTOPRAZOLE
     Indication: PROPHYLAXIS
     Dosage: 40 MG,QD
     Route: 048
     Dates: start: 20170101
  18. DIPYRONE [Concomitant]
     Active Substance: DIPYRONE
     Dosage: 30 DF,QID
     Route: 065
     Dates: start: 2017
  19. HYDROMORPHONE [Concomitant]
     Active Substance: HYDROMORPHONE
     Indication: PAIN
     Dosage: 4 MG,BID
     Route: 048
     Dates: start: 20170101
  20. RAMIPRIL. [Concomitant]
     Active Substance: RAMIPRIL
     Dosage: 5 MG,QD
     Route: 048
     Dates: start: 20170101
  21. INSULIN HUMAN [Concomitant]
     Active Substance: INSULIN HUMAN
     Indication: DIABETES MELLITUS
     Dosage: UNK UNK,UNK
     Route: 048
     Dates: start: 2017
  22. BISOPROLOL [Concomitant]
     Active Substance: BISOPROLOL
     Dosage: 5 MG,QD
     Route: 048
     Dates: start: 2017
  23. PEGFILGRASTIM [Suspect]
     Active Substance: PEGFILGRASTIM
     Indication: B-CELL LYMPHOMA
     Dosage: 6 MG,QCY
     Route: 058
     Dates: start: 20171124
  24. DOXORUBICIN [Suspect]
     Active Substance: DOXORUBICIN
     Indication: B-CELL LYMPHOMA
     Dosage: 103 MG,QCY
     Route: 042
     Dates: start: 20171121
  25. RAMIPRIL. [Concomitant]
     Active Substance: RAMIPRIL
     Indication: HYPERTENSION
     Dosage: 5 MG,PRN
     Route: 048
     Dates: start: 2017
  26. SULFAMETHOXAZOL W/TRIMETOPRIM [Concomitant]
     Active Substance: SULFAMETHOXAZOLE\TRIMETHOPRIM
     Indication: PROPHYLAXIS
     Dosage: 960 MG,UNK
     Route: 048
     Dates: start: 2017
  27. TORSEMIDE. [Concomitant]
     Active Substance: TORSEMIDE
     Indication: HYPERTENSION
     Dosage: 5 MG,QD
     Route: 048
     Dates: start: 20170101
  28. RITUXIMAB. [Suspect]
     Active Substance: RITUXIMAB
     Indication: B-CELL LYMPHOMA
     Dosage: 761 MG,QCY
     Route: 042
     Dates: start: 20171116
  29. CYCLOPHOSPHAMIDE. [Suspect]
     Active Substance: CYCLOPHOSPHAMIDE
     Dosage: UNK UNK,UNK
     Route: 042
  30. PANTOPRAZOLE [Concomitant]
     Active Substance: PANTOPRAZOLE
     Dosage: 40 MG,QD
     Route: 048
     Dates: start: 2017
  31. LEVOTHYROXINE SODIUM. [Concomitant]
     Active Substance: LEVOTHYROXINE SODIUM
     Indication: THYROID OPERATION
     Dosage: 150 UG,QD
     Route: 048
     Dates: start: 20170101
  32. ACICLOVIR [Concomitant]
     Active Substance: ACYCLOVIR
     Indication: PROPHYLAXIS
     Dosage: 200 MG,TID
     Route: 048
     Dates: start: 2017
  33. METAMIZOL NATRIUM [Concomitant]
     Indication: PAIN
     Dosage: 30 DF,QID
     Route: 048
     Dates: start: 2017

REACTIONS (4)
  - Device related infection [Recovered/Resolved]
  - Infection [Recovered/Resolved]
  - Urinary tract infection [Unknown]
  - Pyrexia [Recovered/Resolved]

NARRATIVE: CASE EVENT DATE: 20171219
